FAERS Safety Report 19404862 (Version 1)
Quarter: 2021Q2

REPORT INFORMATION
  Report Type: Spontaneous
  Country: US (occurrence: US)
  Receive Date: 20210611
  Receipt Date: 20210611
  Transmission Date: 20210717
  Serious: Yes (Hospitalization, Other)
  Sender: FDA-Public Use
  Company Number: US-MICRO LABS LIMITED-ML2021-01822

PATIENT
  Age: 23 Year
  Sex: Male

DRUGS (2)
  1. BUPROPION. [Suspect]
     Active Substance: BUPROPION
  2. CITALOPRAM [Suspect]
     Active Substance: CITALOPRAM HYDROBROMIDE

REACTIONS (7)
  - Shock [Recovered/Resolved]
  - Tachycardia [Recovered/Resolved]
  - Arrhythmia [Recovered/Resolved]
  - Cardiac arrest [Recovered/Resolved]
  - Overdose [Unknown]
  - Seizure [Recovered/Resolved]
  - Acidosis [Recovered/Resolved]
